FAERS Safety Report 10230940 (Version 1)
Quarter: 2014Q2

REPORT INFORMATION
  Report Type: Spontaneous
  Country: US (occurrence: None)
  Receive Date: 20140610
  Receipt Date: 20140610
  Transmission Date: 20141212
  Serious: Yes (Disabling)
  Sender: FDA-Public Use
  Company Number: None

PATIENT
  Age: 31 Year
  Sex: Female
  Weight: 58.97 kg

DRUGS (1)
  1. LAMISIL ( TERBINAFINE HYDROCHLORI) 1% [Suspect]
     Indication: TINEA INFECTION
     Dosage: 1 DOSE ONCE DAILY APPLIED TO A SURFACE, USUALLY THE SKIN
     Route: 061
     Dates: start: 20140521, end: 20140524

REACTIONS (5)
  - Rash pruritic [None]
  - Arthralgia [None]
  - Blister [None]
  - Diarrhoea [None]
  - Abdominal pain upper [None]
